FAERS Safety Report 7518848-3 (Version None)
Quarter: 2011Q2

REPORT INFORMATION
  Report Type: 
  Country: None (occurrence: None)
  Receive Date: 20110602
  Receipt Date: 20110530
  Transmission Date: 20111010
  Serious: Yes (Other)
  Sender: FDA-Public Use
  Company Number: US-PFIZER INC-2011116893

PATIENT
  Sex: Male

DRUGS (1)
  1. CHAPSTICK LIP BALM [Suspect]
     Dosage: UNK
     Dates: start: 20050101

REACTIONS (3)
  - APPLICATION SITE ERYTHEMA [None]
  - COMA [None]
  - EPILEPSY [None]
